FAERS Safety Report 5984080-8 (Version None)
Quarter: 2008Q4

REPORT INFORMATION
  Report Type: 
  Country: None (occurrence: None)
  Receive Date: 20081208
  Receipt Date: 20081201
  Transmission Date: 20090506
  Serious: No
  Sender: FDA-Public Use
  Company Number: JP-ELI_LILLY_AND_COMPANY-JP200808005084

PATIENT
  Age: 57 Year
  Sex: Female

DRUGS (2)
  1. GEMZAR [Suspect]
     Indication: PANCREATIC CARCINOMA
     Dosage: 1400 MG, OTHER
     Route: 042
     Dates: start: 20080809, end: 20080816
  2. TS 1 /JPN/ [Concomitant]
     Indication: PANCREATIC CARCINOMA
     Dosage: 100 MG, UNK
     Route: 048
     Dates: start: 20080805

REACTIONS (1)
  - ERYTHEMA MULTIFORME [None]
